FAERS Safety Report 16897924 (Version 1)
Quarter: 2019Q4

REPORT INFORMATION
  Report Type: Spontaneous
  Country: JP (occurrence: JP)
  Receive Date: 20191009
  Receipt Date: 20191009
  Transmission Date: 20200122
  Serious: Yes (Death, Other)
  Sender: FDA-Public Use
  Company Number: JP-FRESENIUS KABI-FK201910933

PATIENT
  Age: 74 Year
  Sex: Male

DRUGS (4)
  1. VORICONAZOLE (MANUFACTURER UNKNOWN) [Suspect]
     Active Substance: VORICONAZOLE
     Indication: BRONCHOPULMONARY ASPERGILLOSIS
     Dosage: UNKNOWN
     Route: 065
  2. METHYLPREDNISOLONE (MANUFACTURER UNKNOWN) [Suspect]
     Active Substance: METHYLPREDNISOLONE
     Indication: BRONCHOPULMONARY ASPERGILLOSIS
     Route: 065
  3. PREDNISOLONE. [Suspect]
     Active Substance: PREDNISOLONE
     Indication: HAEMOPHAGOCYTIC LYMPHOHISTIOCYTOSIS
     Route: 065
  4. AMPHOTERICIN B, LIPOSOME [Concomitant]
     Active Substance: AMPHOTERICIN B
     Indication: BRONCHOPULMONARY ASPERGILLOSIS
     Dosage: UNKNOWN
     Route: 065

REACTIONS (8)
  - Gastrointestinal necrosis [Not Recovered/Not Resolved]
  - Peritonitis [Unknown]
  - Traumatic lung injury [Recovering/Resolving]
  - Gastric perforation [Not Recovered/Not Resolved]
  - Bacterial infection [Fatal]
  - Pneumocystis jirovecii pneumonia [Fatal]
  - Pneumonia [Fatal]
  - Candida infection [Unknown]
